FAERS Safety Report 15206333 (Version 2)
Quarter: 2018Q3

REPORT INFORMATION
  Report Type: Report from Study
  Country: IL (occurrence: IL)
  Receive Date: 20180727
  Receipt Date: 20180831
  Transmission Date: 20181010
  Serious: Yes (Other)
  Sender: FDA-Public Use
  Company Number: IL-ROCHE-2158570

PATIENT
  Sex: Female

DRUGS (3)
  1. COBIMETINIB. [Suspect]
     Active Substance: COBIMETINIB
     Route: 065
     Dates: start: 20180513, end: 20180715
  2. ATEZOLIZUMAB. [Suspect]
     Active Substance: ATEZOLIZUMAB
     Indication: MALIGNANT NEOPLASM OF UNKNOWN PRIMARY SITE
     Route: 065
  3. COBIMETINIB. [Suspect]
     Active Substance: COBIMETINIB
     Indication: MALIGNANT NEOPLASM OF UNKNOWN PRIMARY SITE
     Route: 065
     Dates: start: 20180417, end: 20180503

REACTIONS (2)
  - Hepatic function abnormal [Recovered/Resolved]
  - Hyperbilirubinaemia [Recovered/Resolved]
